FAERS Safety Report 13652030 (Version 2)
Quarter: 2017Q2

REPORT INFORMATION
  Report Type: Spontaneous
  Country: US (occurrence: US)
  Receive Date: 20170614
  Receipt Date: 20170626
  Transmission Date: 20170830
  Serious: Yes (Hospitalization, Disabling, Other)
  Sender: FDA-Public Use
  Company Number: US-BAUSCH-BL-2017-018795

PATIENT
  Sex: Male

DRUGS (1)
  1. XIFAXAN [Suspect]
     Active Substance: RIFAXIMIN
     Indication: PRODUCT USED FOR UNKNOWN INDICATION
     Route: 065

REACTIONS (5)
  - Loss of personal independence in daily activities [Unknown]
  - Hepatic failure [Unknown]
  - Pericardial effusion [Unknown]
  - Ascites [Unknown]
  - Confusional state [Unknown]
